FAERS Safety Report 20880651 (Version 10)
Quarter: 2022Q4

REPORT INFORMATION
  Report Type: Report from Study
  Country: NZ (occurrence: NZ)
  Receive Date: 20220526
  Receipt Date: 20221215
  Transmission Date: 20230112
  Serious: Yes (Other)
  Sender: FDA-Public Use
  Company Number: NZ-ABBVIE-22K-118-4410836-00

PATIENT
  Age: 24 Year
  Sex: Male

DRUGS (16)
  1. PLACEBO [Suspect]
     Active Substance: UNSPECIFIED INGREDIENT
     Indication: Dermatitis atopic
     Route: 048
     Dates: start: 20190903, end: 20191225
  2. UPADACITINIB [Suspect]
     Active Substance: UPADACITINIB
     Indication: Dermatitis atopic
     Route: 048
     Dates: start: 20191226, end: 20220524
  3. BETAMETHASONE VALERATE [Suspect]
     Active Substance: BETAMETHASONE VALERATE
     Indication: Dermatitis atopic
     Route: 061
     Dates: start: 20190903, end: 20190923
  4. BETAMETHASONE VALERATE [Suspect]
     Active Substance: BETAMETHASONE VALERATE
     Indication: Dermatitis atopic
     Dosage: TIME INTERVAL: AS NECESSARY
     Route: 061
     Dates: start: 20210210, end: 20210713
  5. BETAMETHASONE VALERATE [Suspect]
     Active Substance: BETAMETHASONE VALERATE
     Indication: Dermatitis atopic
     Dosage: TIME INTERVAL: AS NECESSARY
     Route: 061
     Dates: start: 20210713
  6. HYDROCORTISONE [Suspect]
     Active Substance: HYDROCORTISONE
     Indication: Dermatitis atopic
     Route: 061
     Dates: start: 20190924, end: 20191001
  7. HYDROCORTISONE [Suspect]
     Active Substance: HYDROCORTISONE
     Indication: Dermatitis atopic
     Dosage: TIME INTERVAL: AS NECESSARY
     Route: 061
     Dates: start: 20191002, end: 20191126
  8. CLOBETASOL PROPIONATE [Suspect]
     Active Substance: CLOBETASOL PROPIONATE
     Indication: Dermatitis atopic
     Dosage: TIME INTERVAL: AS NECESSARY
     Route: 061
     Dates: start: 20210713, end: 20210805
  9. VENTOLIN [Concomitant]
     Active Substance: ALBUTEROL SULFATE
     Indication: Asthma
     Dosage: TIME INTERVAL: AS NECESSARY: 2 PUFFS
     Route: 055
     Dates: start: 2014
  10. BREO ELLIPTA [Concomitant]
     Active Substance: FLUTICASONE FUROATE\VILANTEROL TRIFENATATE
     Indication: Asthma
     Dosage: TIME INTERVAL: AS NECESSARY
     Route: 055
     Dates: start: 2016
  11. CETOMACROGOL 90% AND GLYCEROL 10% [Concomitant]
     Indication: Dry skin prophylaxis
     Dosage: AS NEEDED
     Route: 061
     Dates: start: 20191220
  12. SERETIDE [Concomitant]
     Active Substance: FLUTICASONE PROPIONATE\SALMETEROL XINAFOATE
     Indication: Asthma
     Route: 055
     Dates: start: 20200608
  13. MOMETASONE FUROATE [Suspect]
     Active Substance: MOMETASONE FUROATE
     Indication: Dermatitis atopic
     Route: 061
     Dates: start: 20191002, end: 20191014
  14. MOMETASONE FUROATE [Suspect]
     Active Substance: MOMETASONE FUROATE
     Indication: Dermatitis atopic
     Dosage: TIME INTERVAL: AS NECESSARY
     Route: 061
     Dates: start: 20191127, end: 20191220
  15. LORATADINE [Concomitant]
     Active Substance: LORATADINE
     Indication: Seasonal allergy
     Dosage: TIME INTERVAL: AS NECESSARY
     Route: 048
     Dates: start: 201902, end: 20220221
  16. LORATADINE [Concomitant]
     Active Substance: LORATADINE
     Indication: Seasonal allergy
     Route: 048
     Dates: start: 20220221

REACTIONS (1)
  - Diffuse large B-cell lymphoma [Not Recovered/Not Resolved]

NARRATIVE: CASE EVENT DATE: 20220509
